FAERS Safety Report 13415598 (Version 1)
Quarter: 2017Q2

REPORT INFORMATION
  Report Type: Spontaneous
  Country: GB (occurrence: GB)
  Receive Date: 20170406
  Receipt Date: 20170406
  Transmission Date: 20170830
  Serious: Yes (Hospitalization, Other)
  Sender: FDA-Public Use
  Company Number: GB-TEVA-754479ACC

PATIENT
  Age: 66 Year
  Sex: Male

DRUGS (3)
  1. DEXIMUNE [Suspect]
     Active Substance: CYCLOSPORINE
  2. MYFENAX [Suspect]
     Active Substance: MYCOPHENOLATE MOFETIL
  3. PREDNISOLONE. [Suspect]
     Active Substance: PREDNISOLONE

REACTIONS (2)
  - Lower respiratory tract infection [Unknown]
  - Dyspnoea [Unknown]
